FAERS Safety Report 6126852-5 (Version None)
Quarter: 2009Q1

REPORT INFORMATION
  Report Type: 
  Country: None (occurrence: None)
  Receive Date: 20090320
  Receipt Date: 20090306
  Transmission Date: 20090719
  Serious: No
  Sender: FDA-Public Use
  Company Number: FR-GENENTECH-275736

PATIENT
  Sex: Female

DRUGS (2)
  1. LUCENTIS [Suspect]
     Indication: DRUG USE FOR UNKNOWN INDICATION
     Dosage: 0.05 ML, 1/MONTH
     Route: 031
     Dates: start: 20080310, end: 20080513
  2. LUCENTIS [Suspect]
     Dosage: 0.05 ML, 1/MONTH
     Route: 031
     Dates: start: 20080929, end: 20081124

REACTIONS (1)
  - TINNITUS [None]
